FAERS Safety Report 4299138-1 (Version None)
Quarter: 2004Q1

REPORT INFORMATION
  Report Type: 
  Country: None (occurrence: None)
  Receive Date: 20040217
  Receipt Date: 20040217
  Transmission Date: 20041129
  Serious: Yes (Life-Threatening, Hospitalization)
  Sender: FDA-Public Use
  Company Number: None

PATIENT
  Age: 30 Year
  Sex: Female
  Weight: 66 kg

DRUGS (3)
  1. ORTHO-NOVUM 7/7/7-21 [Suspect]
     Indication: CONTRACEPTION
     Dosage: 7-7-7 DAILY ORAL
     Route: 048
     Dates: start: 19870101, end: 20031205
  2. ENTEX CAP [Concomitant]
  3. VALIUM [Concomitant]

REACTIONS (1)
  - ACUTE MYOCARDIAL INFARCTION [None]
